FAERS Safety Report 23796178 (Version 3)
Quarter: 2024Q2

REPORT INFORMATION
  Report Type: Report from Study
  Country: US (occurrence: US)
  Receive Date: 20240430
  Receipt Date: 20240525
  Transmission Date: 20240716
  Serious: No
  Sender: FDA-Public Use
  Company Number: US-ABBVIE-5735407

PATIENT
  Sex: Female
  Weight: 81.646 kg

DRUGS (5)
  1. SKYRIZI [Suspect]
     Active Substance: RISANKIZUMAB-RZAA
     Indication: Psoriasis
     Dosage: FORM STRENGTH: 150MG
     Route: 058
     Dates: start: 2019
  2. SKYRIZI [Suspect]
     Active Substance: RISANKIZUMAB-RZAA
     Route: 058
     Dates: start: 20240202
  3. SKYRIZI [Suspect]
     Active Substance: RISANKIZUMAB-RZAA
     Dosage: FORM STRENGTH: 150MG
     Route: 058
     Dates: start: 20240203
  4. TACROLIMUS [Concomitant]
     Active Substance: TACROLIMUS
     Indication: Pain
  5. ROSUVASTATIN [Concomitant]
     Active Substance: ROSUVASTATIN
     Indication: Hypertension
     Route: 065

REACTIONS (5)
  - Fungal skin infection [Recovering/Resolving]
  - Insomnia [Not Recovered/Not Resolved]
  - Stress [Not Recovered/Not Resolved]
  - Groin pain [Recovering/Resolving]
  - Rash [Not Recovered/Not Resolved]

NARRATIVE: CASE EVENT DATE: 20240101
